FAERS Safety Report 9723068 (Version 1)
Quarter: 2013Q4

REPORT INFORMATION
  Report Type: Spontaneous
  Country: FR (occurrence: FR)
  Receive Date: 20131202
  Receipt Date: 20131202
  Transmission Date: 20140711
  Serious: Yes (Hospitalization, Other)
  Sender: FDA-Public Use
  Company Number: FR-ROCHE-1310483

PATIENT
  Age: 76 Year
  Sex: Male

DRUGS (12)
  1. XOLAIR [Suspect]
     Indication: ASTHMA
     Dosage: 300 MG IN EACH ARM
     Route: 065
     Dates: start: 20130722, end: 20130722
  2. TRINITRINE [Concomitant]
  3. INEXIUM [Concomitant]
  4. VENTOLINE [Concomitant]
  5. CRESTOR [Concomitant]
  6. AERIUS [Concomitant]
  7. EUPHYLLINE [Concomitant]
  8. CORTANCYL [Concomitant]
  9. SINGULAIR [Concomitant]
  10. BRONCHODUAL [Concomitant]
  11. ATROVENT [Concomitant]
  12. SYMBICORT [Concomitant]

REACTIONS (3)
  - Acute coronary syndrome [Recovered/Resolved]
  - Wheezing [Unknown]
  - Arteriosclerosis [Unknown]
